FAERS Safety Report 15697634 (Version 5)
Quarter: 2019Q1

REPORT INFORMATION
  Report Type: Report from Study
  Country: None (occurrence: BE)
  Receive Date: 20181207
  Receipt Date: 20190111
  Transmission Date: 20190417
  Serious: Yes (Hospitalization)
  Sender: FDA-Public Use
  Company Number: BE-ABBVIE-18S-013-2578790-00

PATIENT
  Age: 76 Year
  Sex: Male

DRUGS (5)
  1. DUODOPA [Suspect]
     Active Substance: CARBIDOPA\LEVODOPA
     Dosage: MD= 5ML CD= 3.1 (AM) AND 3.5 (PM )ML/HR DURING 16HRS ED= 2.5ML
     Route: 050
  2. DUODOPA [Suspect]
     Active Substance: CARBIDOPA\LEVODOPA
     Dosage: MD= 5ML CD= 3.1 (AM) AND 3.5 (PM )ML/HR DURING 16HRS ED= 2.5ML
     Route: 050
     Dates: start: 20181212
  3. DUODOPA [Suspect]
     Active Substance: CARBIDOPA\LEVODOPA
     Indication: PARKINSON^S DISEASE
     Dosage: MD= 5ML CD= 1.7ML/HR DURING 16HRS  ED= 1ML
     Route: 050
     Dates: start: 20110606, end: 20110620
  4. DUODOPA [Suspect]
     Active Substance: CARBIDOPA\LEVODOPA
     Dosage: MD= 5ML CD= 3.1ML/HR (AM) AND 3.5ML/HR (PM) DURING 16HRS  ED= 2.5ML
     Route: 050
     Dates: start: 20180716, end: 20181212
  5. DUODOPA [Suspect]
     Active Substance: CARBIDOPA\LEVODOPA
     Dosage: DOSES CONTINUOUSLY MONITORED AND ADAPTED
     Route: 050
     Dates: start: 20110620, end: 20180716

REACTIONS (5)
  - Intentional medical device removal by patient [Not Recovered/Not Resolved]
  - Embedded device [Unknown]
  - Fall [Recovered/Resolved]
  - Off label use [Not Recovered/Not Resolved]
  - Rib fracture [Unknown]

NARRATIVE: CASE EVENT DATE: 201811
